FAERS Safety Report 6892887-8 (Version None)
Quarter: 2010Q3

REPORT INFORMATION
  Report Type: 
  Country: None (occurrence: None)
  Receive Date: 20100731
  Receipt Date: 20081106
  Transmission Date: 20110219
  Serious: Yes (Other)
  Sender: FDA-Public Use
  Company Number: US-PFIZER INC-2008075206

PATIENT
  Age: 46 Year
  Sex: Male

DRUGS (3)
  1. DEPO-MEDROL [Suspect]
     Indication: INTERVERTEBRAL DISC DEGENERATION
     Route: 008
     Dates: start: 20080529
  2. DEPO-MEDROL [Suspect]
     Indication: INTERVERTEBRAL DISC DISORDER
  3. DEPO-MEDROL [Suspect]
     Indication: EXOSTOSIS

REACTIONS (1)
  - OSTEONECROSIS [None]
